FAERS Safety Report 18716591 (Version 1)
Quarter: 2021Q1

REPORT INFORMATION
  Report Type: Spontaneous
  Country: US (occurrence: US)
  Receive Date: 20210108
  Receipt Date: 20210108
  Transmission Date: 20210419
  Serious: Yes (Hospitalization, Other)
  Sender: FDA-Public Use
  Company Number: US-LUPIN PHARMACEUTICALS INC.-2020-11433

PATIENT
  Age: 41 Year
  Sex: Female

DRUGS (3)
  1. HYDROMORPHONE [Suspect]
     Active Substance: HYDROMORPHONE
     Indication: ABDOMINAL PAIN
     Dosage: 4 MILLIGRAM, QID
     Route: 065
     Dates: start: 2011
  2. FENTANYL. [Suspect]
     Active Substance: FENTANYL
     Indication: ABDOMINAL PAIN
     Dosage: UNK
     Route: 065
     Dates: start: 2012
  3. MORPHINE [Suspect]
     Active Substance: MORPHINE
     Indication: ABDOMINAL PAIN
     Dosage: UNK
     Route: 065
     Dates: start: 2011

REACTIONS (4)
  - Cardiac arrest [Unknown]
  - Hypokalaemia [Unknown]
  - Hyperaesthesia [Recovered/Resolved]
  - Narcotic bowel syndrome [Recovered/Resolved]

NARRATIVE: CASE EVENT DATE: 2013
